FAERS Safety Report 18525325 (Version 1)
Quarter: 2020Q4

REPORT INFORMATION
  Report Type: Spontaneous
  Country: US (occurrence: US)
  Receive Date: 20201120
  Receipt Date: 20201120
  Transmission Date: 20210114
  Serious: Yes (Hospitalization, Other)
  Sender: FDA-Public Use
  Company Number: US-009507513-2011USA011318

PATIENT
  Age: 46 Year
  Sex: Male

DRUGS (62)
  1. VALCYTE [Concomitant]
     Active Substance: VALGANCICLOVIR HYDROCHLORIDE
  2. TUMS [Concomitant]
     Active Substance: CALCIUM CARBONATE
  3. IMURAN [Concomitant]
     Active Substance: AZATHIOPRINE
  4. TOPROL XL [Suspect]
     Active Substance: METOPROLOL SUCCINATE
  5. LASIX [Concomitant]
     Active Substance: FUROSEMIDE
  6. PEPCID [Concomitant]
     Active Substance: FAMOTIDINE
  7. OXYCODONE [Concomitant]
     Active Substance: OXYCODONE
  8. LORTAB [Concomitant]
     Active Substance: ACETAMINOPHEN\HYDROCODONE BITARTRATE
  9. LOTENSIN [Concomitant]
     Active Substance: BENAZEPRIL HYDROCHLORIDE
  10. TORADOL [Concomitant]
     Active Substance: KETOROLAC TROMETHAMINE
  11. COLACE [Concomitant]
     Active Substance: DOCUSATE SODIUM
  12. PREVACID [Concomitant]
     Active Substance: LANSOPRAZOLE
  13. CELLCEPT [Concomitant]
     Active Substance: MYCOPHENOLATE MOFETIL\MYCOPHENOLATE MOFETIL HYDROCHLORIDE
  14. TYLENOL [Concomitant]
     Active Substance: ACETAMINOPHEN
  15. MYCELEX [Concomitant]
     Active Substance: CLOTRIMAZOLE
  16. ROBITUSSIN (GUAIFENESIN) [Concomitant]
     Active Substance: GUAIFENESIN
  17. PERSANTINE [Concomitant]
     Active Substance: DIPYRIDAMOLE
  18. FERROUS SULFATE. [Concomitant]
     Active Substance: FERROUS SULFATE
  19. NOVOLOG [Concomitant]
     Active Substance: INSULIN ASPART
  20. SOLU-MEDROL [Concomitant]
     Active Substance: METHYLPREDNISOLONE SODIUM SUCCINATE
  21. COLCHICINE. [Concomitant]
     Active Substance: COLCHICINE
  22. NEURONTIN [Concomitant]
     Active Substance: GABAPENTIN
  23. AUGMENTIN [Concomitant]
     Active Substance: AMOXICILLIN\CLAVULANATE POTASSIUM
  24. PRINIVIL [Suspect]
     Active Substance: LISINOPRIL
     Dosage: 140MG
     Route: 048
  25. ALDACTONE [Concomitant]
     Active Substance: SPIRONOLACTONE
  26. VICODIN [Concomitant]
     Active Substance: ACETAMINOPHEN\HYDROCODONE BITARTRATE
  27. ATIVAN [Concomitant]
     Active Substance: LORAZEPAM
  28. HEPARIN [Concomitant]
     Active Substance: HEPARIN SODIUM
  29. ULTRAM [Concomitant]
     Active Substance: TRAMADOL HYDROCHLORIDE
  30. NYSTATIN. [Concomitant]
     Active Substance: NYSTATIN
  31. PREDNISONE. [Concomitant]
     Active Substance: PREDNISONE
  32. LANTUS [Concomitant]
     Active Substance: INSULIN GLARGINE
  33. PRAVACHOL [Concomitant]
     Active Substance: PRAVASTATIN SODIUM
  34. PRILOSEC [Concomitant]
     Active Substance: OMEPRAZOLE MAGNESIUM
  35. KEFLEX [Concomitant]
     Active Substance: CEPHALEXIN
  36. DIGOXIN. [Suspect]
     Active Substance: DIGOXIN
     Indication: CARDIOMYOPATHY
     Dosage: 0.25 MG, QD
     Route: 048
     Dates: start: 20000419, end: 200802
  37. COUMADIN [Suspect]
     Active Substance: WARFARIN SODIUM
  38. OXYGEN. [Concomitant]
     Active Substance: OXYGEN
  39. COMBIVENT [Concomitant]
     Active Substance: ALBUTEROL SULFATE\IPRATROPIUM BROMIDE
  40. PRINIVIL [Concomitant]
     Active Substance: LISINOPRIL
  41. ASPIRIN. [Concomitant]
     Active Substance: ASPIRIN
  42. MIRALAX [Concomitant]
     Active Substance: POLYETHYLENE GLYCOL 3350
  43. PROGRAF [Concomitant]
     Active Substance: TACROLIMUS
  44. MAGNESIUM OXIDE. [Concomitant]
     Active Substance: MAGNESIUM OXIDE
  45. CALCITONIN [Concomitant]
     Active Substance: CALCITONIN
  46. NORVASC [Concomitant]
     Active Substance: AMLODIPINE BESYLATE
  47. COREG [Concomitant]
     Active Substance: CARVEDILOL
  48. AMBIEN [Concomitant]
     Active Substance: ZOLPIDEM TARTRATE
  49. SEPTRA DS [Concomitant]
     Active Substance: SULFAMETHOXAZOLE\TRIMETHOPRIM
  50. FOSAMAX [Concomitant]
     Active Substance: ALENDRONATE SODIUM
  51. CALCIUM CARBONATE. [Concomitant]
     Active Substance: CALCIUM CARBONATE
  52. COZAAR [Suspect]
     Active Substance: LOSARTAN POTASSIUM
     Dosage: 1500MG
     Route: 048
  53. SPIRONOLACTONE. [Concomitant]
     Active Substance: SPIRONOLACTONE
  54. POTASSIUM CHLORIDE. [Concomitant]
     Active Substance: POTASSIUM CHLORIDE
  55. LEVAQUIN [Concomitant]
     Active Substance: LEVOFLOXACIN
  56. ATENOLOL. [Concomitant]
     Active Substance: ATENOLOL
  57. MORPHINE [Concomitant]
     Active Substance: MORPHINE
  58. AMIODARONE [Concomitant]
     Active Substance: AMIODARONE
  59. SENOKOT [Concomitant]
     Active Substance: SENNOSIDES
  60. ZITHROMAX [Concomitant]
     Active Substance: AZITHROMYCIN DIHYDRATE
  61. ALLOPURINOL. [Concomitant]
     Active Substance: ALLOPURINOL
  62. PHYTONADIONE. [Concomitant]
     Active Substance: PHYTONADIONE

REACTIONS (61)
  - Conjunctival haemorrhage [Recovered/Resolved]
  - Economic problem [Unknown]
  - Hyperglycaemia [Unknown]
  - Cytomegalovirus test positive [Unknown]
  - Syncope [Unknown]
  - Wheezing [Unknown]
  - Respiratory distress [Unknown]
  - Pneumonia [Unknown]
  - Ejection fraction decreased [Unknown]
  - Bronchospasm [Unknown]
  - Ligament sprain [Unknown]
  - Snoring [Unknown]
  - Flank pain [Unknown]
  - Vomiting [Unknown]
  - Brain natriuretic peptide increased [Unknown]
  - Right atrial dilatation [Unknown]
  - Blood ethanol increased [Unknown]
  - Pyrexia [Unknown]
  - Productive cough [Unknown]
  - Pulmonary congestion [Unknown]
  - Prothrombin time prolonged [Unknown]
  - Chills [Unknown]
  - Drug withdrawal convulsions [Unknown]
  - Pallor [Unknown]
  - Ill-defined disorder [Unknown]
  - Ventricular tachycardia [Unknown]
  - Heart transplant [Unknown]
  - Neuropathy peripheral [Unknown]
  - Groin pain [Unknown]
  - Cardiac failure congestive [Unknown]
  - Pain [Unknown]
  - Heart transplant rejection [Unknown]
  - Blood thyroid stimulating hormone increased [Unknown]
  - Musculoskeletal pain [Unknown]
  - International normalised ratio increased [Unknown]
  - Dyspnoea [Unknown]
  - Abdominal pain upper [Unknown]
  - Arthralgia [Unknown]
  - Respiratory failure [Unknown]
  - Sleep apnoea syndrome [Unknown]
  - Malaise [Unknown]
  - Pulmonary oedema [Unknown]
  - Epstein-Barr virus test positive [Unknown]
  - Pain in extremity [Unknown]
  - Poor sucking reflex [Recovered/Resolved]
  - Right ventricular enlargement [Unknown]
  - Overdose [Unknown]
  - Tachycardia [Unknown]
  - Hypotension [Unknown]
  - Left ventricular hypertrophy [Unknown]
  - Generalised tonic-clonic seizure [Unknown]
  - Tremor [Unknown]
  - Osteoarthritis [Unknown]
  - Cardiomyopathy alcoholic [Unknown]
  - Injury [Unknown]
  - Oedema [Unknown]
  - Left atrial dilatation [Unknown]
  - Blood pressure increased [Unknown]
  - Blood glucose increased [Unknown]
  - Fatigue [Unknown]
  - Eye swelling [Recovered/Resolved]
